FAERS Safety Report 10830419 (Version 1)
Quarter: 2015Q1

REPORT INFORMATION
  Report Type: Spontaneous
  Country: US (occurrence: US)
  Receive Date: 20150219
  Receipt Date: 20150219
  Transmission Date: 20150721
  Serious: No
  Sender: FDA-Public Use
  Company Number: US-PFIZER INC-2015064574

PATIENT
  Age: 58 Year
  Sex: Female

DRUGS (2)
  1. VORICONAZOLE. [Suspect]
     Active Substance: VORICONAZOLE
     Indication: SCEDOSPORIUM INFECTION
     Dosage: UNK
  2. MICAFUNGIN [Suspect]
     Active Substance: MICAFUNGIN
     Indication: SCEDOSPORIUM INFECTION
     Dosage: UNK

REACTIONS (1)
  - Drug ineffective [Unknown]
